FAERS Safety Report 22075312 (Version 1)
Quarter: 2023Q1

REPORT INFORMATION
  Report Type: Spontaneous
  Country: US (occurrence: None)
  Receive Date: 20230307
  Receipt Date: 20230307
  Transmission Date: 20230418
  Serious: No
  Sender: FDA-Public Use
  Company Number: None

PATIENT
  Sex: Male

DRUGS (1)
  1. RINVOQ [Suspect]
     Active Substance: UPADACITINIB
     Indication: Colitis ulcerative
     Dosage: 45MG DAILY PO?
     Route: 048
     Dates: start: 20230222

REACTIONS (6)
  - Haematochezia [None]
  - Cough [None]
  - Cough [None]
  - Pyrexia [None]
  - Chills [None]
  - Night sweats [None]
